FAERS Safety Report 5528932-1 (Version None)
Quarter: 2007Q4

REPORT INFORMATION
  Report Type: 
  Country: None (occurrence: None)
  Receive Date: 20071129
  Receipt Date: 20071120
  Transmission Date: 20080405
  Serious: Yes (Hospitalization)
  Sender: FDA-Public Use
  Company Number: US-KINGPHARMUSA00001-K200701504

PATIENT

DRUGS (1)
  1. LORABID [Suspect]

REACTIONS (2)
  - HYPERSENSITIVITY [None]
  - HYPERTENSION [None]
